FAERS Safety Report 19189435 (Version 1)
Quarter: 2021Q2

REPORT INFORMATION
  Report Type: Spontaneous
  Country: US (occurrence: US)
  Receive Date: 20210428
  Receipt Date: 20210428
  Transmission Date: 20210717
  Serious: Yes (Hospitalization)
  Sender: FDA-Public Use
  Company Number: None

PATIENT
  Age: 50 Year
  Sex: Male
  Weight: 134.1 kg

DRUGS (2)
  1. INSULIN [Concomitant]
     Active Substance: INSULIN NOS
  2. CHLORHEXIDINE 0.12% ORAL RINSE [Suspect]
     Active Substance: CHLORHEXIDINE
     Indication: ANTIBIOTIC PROPHYLAXIS
     Dosage: ?          QUANTITY:473 ML;OTHER FREQUENCY:CAP FULL TWICE DAY;?
     Route: 048
     Dates: start: 20210423, end: 20210426

REACTIONS (3)
  - Oral infection [None]
  - Product contamination microbial [None]
  - Product contamination physical [None]

NARRATIVE: CASE EVENT DATE: 20210423
